FAERS Safety Report 8669155 (Version 2)
Quarter: 2013Q4

REPORT INFORMATION
  Report Type: Report from Study
  Country: US (occurrence: US)
  Receive Date: 20120717
  Receipt Date: 20131031
  Transmission Date: 20140711
  Serious: Yes (Hospitalization)
  Sender: FDA-Public Use
  Company Number: US-009507513-1205USA01213

PATIENT
  Age: 58 Year
  Sex: Female
  Weight: 80.74 kg

DRUGS (24)
  1. VITAMIN D (UNSPECIFIED) [Concomitant]
     Dates: start: 20120506
  2. POTASSIUM BICARBONATE [Concomitant]
     Dates: start: 20120506
  3. BACTRIM [Concomitant]
     Dates: start: 20120506
  4. COMPAZINE [Concomitant]
     Dates: start: 20120506
  5. NYSTATIN [Concomitant]
     Dates: start: 20120506
  6. LORAZEPAM [Concomitant]
  7. POTASSIUM CHLORIDE [Concomitant]
  8. RITUXAN [Suspect]
     Dosage: DAY - 19 AND DAY - 12
  9. CARMUSTINE [Suspect]
     Dosage: DAY - 7
  10. ARA-C [Suspect]
     Dosage: DAY -6 TIL DAY -3
  11. VP-16 [Suspect]
     Dosage: DAY -6 TILL DAY -3
  12. MELPHALAN [Suspect]
     Dosage: DAY -2
  13. CHOLECALCIFEROL [Concomitant]
  14. DIPHENHYDRAMINE HYDROCHLORIDE [Concomitant]
  15. LOPERAMIDE HYDROCHLORIDE [Concomitant]
  16. VORINOSTAT [Suspect]
     Indication: NON-HODGKIN^S LYMPHOMA
     Dosage: 200 MG, QD
     Route: 048
     Dates: start: 20120430, end: 20120506
  17. VELCADE [Suspect]
     Indication: NON-HODGKIN^S LYMPHOMA
     Dosage: D2 AND D8
     Route: 042
     Dates: start: 20120501
  18. CITALOPRAM [Concomitant]
     Dates: start: 20120506
  19. ALLEGRA [Concomitant]
     Dates: start: 20120506
  20. ZOFRAN [Concomitant]
     Dates: start: 20120506
  21. ZOVIRAX [Concomitant]
     Dates: start: 20120506
  22. DAPSONE [Concomitant]
     Dates: start: 20120506
  23. FOLIC ACID [Concomitant]
     Dates: start: 20120506
  24. VITAMINS (UNSPECIFIED) [Concomitant]
     Dates: start: 20120506

REACTIONS (1)
  - Pneumonia [Recovered/Resolved]
